FAERS Safety Report 10220211 (Version 1)
Quarter: 2014Q2

REPORT INFORMATION
  Report Type: Report from Study
  Country: US (occurrence: US)
  Receive Date: 20140606
  Receipt Date: 20140606
  Transmission Date: 20141212
  Serious: Yes (Other)
  Sender: FDA-Public Use
  Company Number: US-ABBVIE-14K-163-1240941-00

PATIENT
  Age: 34 Year
  Sex: Female

DRUGS (6)
  1. LUPRON DEPOT [Suspect]
     Indication: ENDOMETRIOSIS
     Dates: start: 201302, end: 201307
  2. CIPRO [Suspect]
     Indication: PRODUCT USED FOR UNKNOWN INDICATION
  3. NSAID^S [Suspect]
     Indication: PRODUCT USED FOR UNKNOWN INDICATION
  4. VITAMINS NOS [Concomitant]
     Indication: PRODUCT USED FOR UNKNOWN INDICATION
     Route: 048
  5. FERROUS SULFATE [Concomitant]
     Indication: PRODUCT USED FOR UNKNOWN INDICATION
     Route: 048
  6. VITAMINS NOS [Concomitant]
     Indication: PRODUCT USED FOR UNKNOWN INDICATION
     Dosage: ONE PILL
     Route: 048

REACTIONS (3)
  - Renal failure acute [Unknown]
  - Pelvic pain [Not Recovered/Not Resolved]
  - Menorrhagia [Not Recovered/Not Resolved]
